FAERS Safety Report 8849040 (Version 2)
Quarter: 2013Q1

REPORT INFORMATION
  Report Type: Report from Study
  Country: CA (occurrence: CA)
  Receive Date: 20121019
  Receipt Date: 20130208
  Transmission Date: 20140127
  Serious: Yes (Other)
  Sender: FDA-Public Use
  Company Number: CA-JNJFOC-20121006670

PATIENT
  Sex: Male
  Weight: 90 kg

DRUGS (3)
  1. REMICADE [Suspect]
     Indication: CROHN^S DISEASE
     Route: 042
     Dates: start: 200802, end: 20120822
  2. IMURAN [Concomitant]
     Route: 065
  3. BUDESONIDE [Concomitant]
     Route: 065

REACTIONS (2)
  - Anal cancer [Unknown]
  - Metastatic squamous cell carcinoma [Unknown]
